FAERS Safety Report 8828987 (Version 3)
Quarter: 2013Q1

REPORT INFORMATION
  Report Type: Spontaneous
  Country: US (occurrence: US)
  Receive Date: 20121009
  Receipt Date: 20130305
  Transmission Date: 20140127
  Serious: Yes (Hospitalization, Other)
  Sender: FDA-Public Use
  Company Number: US-BIOGENIDEC-2012BI043117

PATIENT
  Age: 48 Year
  Sex: Female

DRUGS (3)
  1. TYSABRI [Suspect]
     Indication: MULTIPLE SCLEROSIS
     Route: 042
     Dates: start: 20070228, end: 20080902
  2. TYSABRI [Suspect]
     Indication: MULTIPLE SCLEROSIS
     Route: 042
     Dates: start: 20090507, end: 20090928
  3. TYSABRI [Suspect]
     Indication: MULTIPLE SCLEROSIS
     Route: 042
     Dates: start: 20120425

REACTIONS (6)
  - Hypoaesthesia [Recovered/Resolved]
  - Skin cancer [Recovered/Resolved]
  - Sensation of heaviness [Not Recovered/Not Resolved]
  - Induration [Not Recovered/Not Resolved]
  - Sick sinus syndrome [Not Recovered/Not Resolved]
  - Malaise [Not Recovered/Not Resolved]
